FAERS Safety Report 10090680 (Version 2)
Quarter: 2014Q2

REPORT INFORMATION
  Report Type: Report from Study
  Country: AT (occurrence: AT)
  Receive Date: 20140421
  Receipt Date: 20140509
  Transmission Date: 20141212
  Serious: Yes (Death, Hospitalization, Other)
  Sender: FDA-Public Use
  Company Number: AT-INCYTE CORPORATION-2014IN001040

PATIENT
  Age: 71 Year
  Sex: Male
  Weight: 67 kg

DRUGS (7)
  1. JAKAVI [Suspect]
     Indication: MYELOFIBROSIS
     Dosage: 5 MG, (2-0-2)
     Route: 048
     Dates: start: 20140125
  2. EXJADE [Suspect]
     Dosage: 500 MG, (0-0-1/2)
  3. PANTOLOC CONTROL [Concomitant]
  4. UROSIN                             /00003301/ [Concomitant]
  5. SERACTIL [Concomitant]
  6. OLEOVIT D3 [Concomitant]
  7. ENTEROBENE [Concomitant]

REACTIONS (13)
  - Cardiopulmonary failure [Fatal]
  - Sepsis [Fatal]
  - Diverticulitis [Unknown]
  - General physical health deterioration [None]
  - Intestinal perforation [Unknown]
  - Atrial fibrillation [Unknown]
  - Epistaxis [Unknown]
  - Anaemia [Unknown]
  - Blast cell count increased [Unknown]
  - Thrombocytopenia [Unknown]
  - Basophilia [Unknown]
  - Leukopenia [Unknown]
  - Platelet disorder [Unknown]
